FAERS Safety Report 5287685-5 (Version None)
Quarter: 2007Q1

REPORT INFORMATION
  Report Type: 
  Country: None (occurrence: None)
  Receive Date: 20070105
  Receipt Date: 20061012
  Transmission Date: 20070707
  Serious: Yes (Other)
  Sender: FDA-Public Use
  Company Number: US-JNJFOC-20061003400

PATIENT
  Age: 53 Year
  Sex: Female
  Weight: 58.0604 kg

DRUGS (4)
  1. ULTRAM ER [Suspect]
     Indication: ARTHRALGIA
     Dates: start: 20060621, end: 20060621
  2. XOPENEX [Suspect]
     Indication: RESPIRATORY FUME INHALATION DISORDER
     Dosage: SEE IMAGE
     Route: 055
     Dates: start: 20060620, end: 20060620
  3. XOPENEX [Suspect]
     Indication: RESPIRATORY FUME INHALATION DISORDER
     Dosage: SEE IMAGE
     Route: 055
     Dates: start: 20060621, end: 20060621
  4. EVISTA [Concomitant]

REACTIONS (6)
  - CHEST DISCOMFORT [None]
  - COLD SWEAT [None]
  - HEADACHE [None]
  - NAUSEA [None]
  - THROAT TIGHTNESS [None]
  - VOMITING [None]
